FAERS Safety Report 15288992 (Version 1)
Quarter: 2018Q3

REPORT INFORMATION
  Report Type: Spontaneous
  Country: US (occurrence: US)
  Receive Date: 20180803
  Receipt Date: 20180803
  Transmission Date: 20181010
  Serious: Yes (Hospitalization)
  Sender: FDA-Public Use
  Company Number: None

PATIENT
  Age: 7 Year
  Sex: Male

DRUGS (19)
  1. FLAGYL [Suspect]
     Active Substance: METRONIDAZOLE\METRONIDAZOLE HYDROCHLORIDE
     Indication: EPILEPSY
  2. ALBUTEROL. [Concomitant]
     Active Substance: ALBUTEROL
  3. KEPPRA [Concomitant]
     Active Substance: LEVETIRACETAM
  4. SCOPOLAMINE [Concomitant]
     Active Substance: SCOPOLAMINE
  5. SODIUM CHLOR [Concomitant]
     Active Substance: SODIUM CHLORIDE
  6. CLONAZEPAM. [Concomitant]
     Active Substance: CLONAZEPAM
  7. DIAZEPAM. [Concomitant]
     Active Substance: DIAZEPAM
  8. FLONASE [Concomitant]
     Active Substance: FLUTICASONE PROPIONATE
  9. ERYTHROMYCIN. [Concomitant]
     Active Substance: ERYTHROMYCIN
  10. IPRATROPIUM [Concomitant]
     Active Substance: IPRATROPIUM
  11. LANSOPRAZOLE. [Concomitant]
     Active Substance: LANSOPRAZOLE
  12. ONFI [Concomitant]
     Active Substance: CLOBAZAM
  13. AMOX/K CLAV [Concomitant]
     Active Substance: AMOXICILLIN\CLAVULANATE POTASSIUM
  14. CLONIDINE. [Concomitant]
     Active Substance: CLONIDINE
  15. PULMICORT TURBUHALER [Concomitant]
     Active Substance: BUDESONIDE
  16. RANITIDINE. [Concomitant]
     Active Substance: RANITIDINE
  17. VIGABATRIN. [Concomitant]
     Active Substance: VIGABATRIN
  18. NYSTATIN. [Concomitant]
     Active Substance: NYSTATIN
  19. SENNA ? GRX [Concomitant]

REACTIONS (1)
  - Hypersensitivity [None]

NARRATIVE: CASE EVENT DATE: 20180714
